FAERS Safety Report 10187172 (Version 2)
Quarter: 2014Q2

REPORT INFORMATION
  Report Type: Spontaneous
  Country: US (occurrence: US)
  Receive Date: 20140522
  Receipt Date: 20140528
  Transmission Date: 20141212
  Serious: No
  Sender: FDA-Public Use
  Company Number: US-TEVA-481402USA

PATIENT
  Age: 23 Year
  Sex: Female
  Weight: 81.72 kg

DRUGS (3)
  1. PLAN B ONE-STEP [Suspect]
     Indication: POST COITAL CONTRACEPTION
     Dosage: 1.5 MILLIGRAM DAILY;
     Route: 048
     Dates: start: 20140422, end: 20140422
  2. ACICLOVIR [Suspect]
     Indication: HERPES SIMPLEX
     Dosage: 1200 MILLIGRAM DAILY; FOR FIVE DAYS
     Dates: start: 20140423
  3. ORTHO CYCLEN [Concomitant]
     Indication: CONTRACEPTION

REACTIONS (2)
  - Herpes simplex [Recovered/Resolved]
  - Menstruation irregular [Recovered/Resolved]
